FAERS Safety Report 6195885-5 (Version None)
Quarter: 2009Q2

REPORT INFORMATION
  Report Type: 
  Country: None (occurrence: None)
  Receive Date: 20090520
  Receipt Date: 20090507
  Transmission Date: 20091009
  Serious: Yes (Hospitalization)
  Sender: FDA-Public Use
  Company Number: JP-ROCHE-629102

PATIENT
  Sex: Male
  Weight: 111 kg

DRUGS (6)
  1. TAMIFLU [Suspect]
     Indication: INFLUENZA
     Dosage: DRUG NAME: TAMIFLU CAPSULE
     Route: 048
     Dates: start: 20090413, end: 20090416
  2. TAMIFLU [Suspect]
     Dosage: DOSE DECREASED
     Route: 048
     Dates: start: 20090417, end: 20090417
  3. DASEN [Concomitant]
     Indication: INFLUENZA
     Route: 048
     Dates: start: 20090413, end: 20090417
  4. MUCODYNE [Concomitant]
     Indication: INFLUENZA
     Route: 048
     Dates: start: 20090413, end: 20090417
  5. MARZULENE-S [Concomitant]
     Indication: INFLUENZA
     Route: 048
     Dates: start: 20090413, end: 20090417
  6. LETRAC [Concomitant]
     Route: 048
     Dates: start: 20090413, end: 20090417

REACTIONS (5)
  - ABNORMAL BEHAVIOUR [None]
  - ACALCULIA [None]
  - APRAXIA [None]
  - DISORIENTATION [None]
  - TREMOR [None]
